FAERS Safety Report 20099760 (Version 1)
Quarter: 2021Q4

REPORT INFORMATION
  Report Type: Report from Study
  Country: CA (occurrence: CA)
  Receive Date: 20211123
  Receipt Date: 20211123
  Transmission Date: 20220303
  Serious: Yes (Death)
  Sender: FDA-Public Use
  Company Number: CA-BAUSCH-BL-2020-022443

PATIENT
  Age: 65 Year
  Sex: Male

DRUGS (5)
  1. SILIQ [Suspect]
     Active Substance: BRODALUMAB
     Indication: Psoriasis
     Dosage: 210 MG/ 1.5 ML, WEEK 1, 2 AND 3
     Route: 058
     Dates: start: 20200623, end: 202007
  2. SILIQ [Suspect]
     Active Substance: BRODALUMAB
     Dosage: 210 MG/ 1.5 ML
     Route: 058
     Dates: start: 202007
  3. SILIQ [Suspect]
     Active Substance: BRODALUMAB
     Dosage: 210 MG/ 1.5 ML
     Route: 058
     Dates: start: 2021, end: 2021
  4. ACETYLSALICYLIC ACID [Concomitant]
     Indication: Product used for unknown indication
  5. ALEVE [Concomitant]
     Active Substance: NAPROXEN SODIUM
     Indication: Product used for unknown indication

REACTIONS (3)
  - Death [Fatal]
  - Dyspnoea [Unknown]
  - Blood pressure increased [Unknown]

NARRATIVE: CASE EVENT DATE: 20200804
